FAERS Safety Report 5718611-X (Version None)
Quarter: 2008Q2

REPORT INFORMATION
  Report Type: 
  Country: None (occurrence: None)
  Receive Date: 20080425
  Receipt Date: 20080414
  Transmission Date: 20081010
  Serious: Yes (Other)
  Sender: FDA-Public Use
  Company Number: US-PFIZER INC-2008019866

PATIENT
  Sex: Female
  Weight: 46.3 kg

DRUGS (10)
  1. CHANTIX [Suspect]
     Indication: SMOKING CESSATION THERAPY
     Dates: start: 20070115, end: 20080225
  2. ZETIA [Concomitant]
     Indication: BLOOD CHOLESTEROL INCREASED
  3. CRESTOR [Concomitant]
     Indication: BLOOD CHOLESTEROL INCREASED
  4. PREMARIN [Concomitant]
     Dosage: DAILY DOSE:.625MG
  5. LEXAPRO [Concomitant]
     Dosage: DAILY DOSE:10MG
  6. DETROL LA [Concomitant]
     Dosage: DAILY DOSE:4MG
  7. NASACORT [Concomitant]
  8. AMBIEN [Concomitant]
  9. MIRALAX [Concomitant]
  10. ASCOMP [Concomitant]

REACTIONS (7)
  - BALANCE DISORDER [None]
  - FALL [None]
  - HYPERSENSITIVITY [None]
  - HYPOAESTHESIA [None]
  - JOINT DISLOCATION [None]
  - LIMB INJURY [None]
  - SWELLING [None]
